FAERS Safety Report 21266800 (Version 1)
Quarter: 2022Q3

REPORT INFORMATION
  Report Type: Spontaneous
  Country: US (occurrence: None)
  Receive Date: 20220826
  Receipt Date: 20220826
  Transmission Date: 20221027
  Serious: No
  Sender: FDA-Public Use
  Company Number: None

PATIENT
  Age: 24 Year
  Sex: Male
  Weight: 89.18 kg

DRUGS (2)
  1. LEVETIRACETAM [Suspect]
     Active Substance: LEVETIRACETAM
     Indication: Partial seizures
     Dosage: 500MG AM ORAL?
     Route: 048
     Dates: start: 202010, end: 202108
  2. LEVETIRACETAM [Suspect]
     Active Substance: LEVETIRACETAM
     Indication: Partial seizures
     Dosage: 750 PM ORAL
     Route: 048
     Dates: start: 202010, end: 202108

REACTIONS (7)
  - Seizure [None]
  - Product substitution issue [None]
  - Anticonvulsant drug level below therapeutic [None]
  - Affective disorder [None]
  - Behaviour disorder [None]
  - Insurance issue [None]
  - Impaired quality of life [None]

NARRATIVE: CASE EVENT DATE: 20210101
